FAERS Safety Report 11349082 (Version 1)
Quarter: 2015Q3

REPORT INFORMATION
  Report Type: Spontaneous
  Country: US (occurrence: US)
  Receive Date: 20150807
  Receipt Date: 20150807
  Transmission Date: 20151125
  Serious: No
  Sender: FDA-Public Use
  Company Number: US-ASTRAZENECA-2015SE73276

PATIENT
  Sex: Female

DRUGS (5)
  1. OMEPRAZOLE OTC [Suspect]
     Active Substance: OMEPRAZOLE
     Route: 048
  2. OMEPRAZOLE OTC [Suspect]
     Active Substance: OMEPRAZOLE
     Route: 048
  3. PRILOSEC OTC [Suspect]
     Active Substance: OMEPRAZOLE MAGNESIUM
     Route: 048
  4. OMEPRAZOLE OTC [Suspect]
     Active Substance: OMEPRAZOLE
     Route: 048
  5. NEXIUM [Suspect]
     Active Substance: ESOMEPRAZOLE MAGNESIUM
     Route: 048

REACTIONS (1)
  - Dyspepsia [Unknown]
